FAERS Safety Report 23338789 (Version 1)
Quarter: 2023Q4

REPORT INFORMATION
  Report Type: Spontaneous
  Country: US (occurrence: US)
  Receive Date: 20231226
  Receipt Date: 20231226
  Transmission Date: 20240110
  Serious: No
  Sender: FDA-Public Use
  Company Number: US-BAYER-2023A184329

PATIENT

DRUGS (1)
  1. ALEVE [Suspect]
     Active Substance: NAPROXEN SODIUM
     Indication: Nutritional supplementation
     Dosage: 3 DF, TID

REACTIONS (2)
  - Incorrect dose administered [Unknown]
  - Therapeutic product effect incomplete [Unknown]
